FAERS Safety Report 23078170 (Version 2)
Quarter: 2023Q4

REPORT INFORMATION
  Report Type: Spontaneous
  Country: DE (occurrence: DE)
  Receive Date: 20231018
  Receipt Date: 20231122
  Transmission Date: 20240110
  Serious: Yes (Life-Threatening)
  Sender: FDA-Public Use
  Company Number: DE-ALK-ABELLO A/S-2023AA003727

PATIENT

DRUGS (1)
  1. GRAZAX [Suspect]
     Active Substance: PHLEUM PRATENSE POLLEN
     Indication: Conjunctivitis allergic
     Dosage: 75000 SQ-T
     Route: 060
     Dates: start: 20230926, end: 20230928

REACTIONS (8)
  - Oral discomfort [Recovered/Resolved]
  - Dyspepsia [Recovered/Resolved]
  - Chest discomfort [Recovered/Resolved]
  - Retching [Recovered/Resolved]
  - Dyspnoea [Recovered/Resolved]
  - Hyperventilation [Recovered/Resolved]
  - Lip oedema [Recovered/Resolved]
  - Eructation [Recovered/Resolved]

NARRATIVE: CASE EVENT DATE: 20230926
